FAERS Safety Report 6815461-8 (Version None)
Quarter: 2010Q3

REPORT INFORMATION
  Report Type: 
  Country: None (occurrence: None)
  Receive Date: 20100702
  Receipt Date: 20100621
  Transmission Date: 20110219
  Serious: Yes (Other)
  Sender: FDA-Public Use
  Company Number: CO-JNJFOC-20100607325

PATIENT
  Age: 37 Year
  Sex: Female

DRUGS (2)
  1. REMICADE [Suspect]
     Indication: RHEUMATOID ARTHRITIS
     Dosage: 13TH INFUSION
     Route: 042
  2. REMICADE [Suspect]
     Route: 042

REACTIONS (6)
  - GENERALISED OEDEMA [None]
  - INFUSION RELATED REACTION [None]
  - INJECTION SITE INFLAMMATION [None]
  - INJECTION SITE PAIN [None]
  - PAIN [None]
  - PARAESTHESIA [None]
